FAERS Safety Report 5507020-4 (Version None)
Quarter: 2007Q4

REPORT INFORMATION
  Report Type: 
  Country: None (occurrence: None)
  Receive Date: 20071105
  Receipt Date: 20071102
  Transmission Date: 20080405
  Serious: Yes (Life-Threatening, Hospitalization, Other)
  Sender: FDA-Public Use
  Company Number: JP-BOEHRINGER INGELHEIM PHARMACEUTICALS, INC.-2007-BP-20636NB

PATIENT
  Sex: Male

DRUGS (3)
  1. MICARDIS [Suspect]
     Indication: HYPERTENSION
     Route: 048
     Dates: start: 20060729, end: 20061014
  2. NEOPHAGEN (GLYCYRRHIZIC ACID_DL METHIONINE COMBINED DRUG  ) [Concomitant]
     Route: 048
     Dates: start: 20021001
  3. POLARAMINE (D-CHLORPHENIPRAMINE MALEATE) [Concomitant]
     Route: 048
     Dates: start: 20021001

REACTIONS (1)
  - LUNG NEOPLASM MALIGNANT [None]
